FAERS Safety Report 8275804-8 (Version None)
Quarter: 2012Q2

REPORT INFORMATION
  Report Type: 
  Country: None (occurrence: None)
  Receive Date: 20120410
  Receipt Date: 20120410
  Transmission Date: 20120825
  Serious: No
  Sender: FDA-Public Use
  Company Number: None

PATIENT

DRUGS (1)
  1. CARBOPLATIN [Suspect]
     Indication: LUNG CANCER METASTATIC
     Dosage: 274 MG Q 3WKS IV
     Route: 042
     Dates: start: 20110824, end: 20120402

REACTIONS (7)
  - NAUSEA [None]
  - INFUSION RELATED REACTION [None]
  - VOMITING [None]
  - BLOOD PRESSURE INCREASED [None]
  - CHEST DISCOMFORT [None]
  - ORAL DISCOMFORT [None]
  - PO2 DECREASED [None]
